FAERS Safety Report 25804210 (Version 1)
Quarter: 2025Q3

REPORT INFORMATION
  Report Type: Spontaneous
  Country: US (occurrence: None)
  Receive Date: 20250915
  Receipt Date: 20250915
  Transmission Date: 20251021
  Serious: Yes (Other)
  Sender: FDA-CTU
  Company Number: None

PATIENT
  Age: 51 Year
  Sex: Female
  Weight: 98.1 kg

DRUGS (21)
  1. ASCENIV [Suspect]
     Active Substance: HUMAN IMMUNOGLOBULIN G
     Indication: Immunodeficiency common variable
     Dosage: FREQUENCY : 4 TIMES A DAY;?
     Route: 042
     Dates: start: 20250709, end: 20250709
  2. AZITHROMYCIN ANHYDROUS [Concomitant]
     Active Substance: AZITHROMYCIN ANHYDROUS
     Dates: start: 20250204
  3. Trelegy 200/62.5/25 [Concomitant]
     Dates: start: 20241230
  4. Albuterol HFA 108 mcg [Concomitant]
     Dates: start: 20240614
  5. ADDERALL [Concomitant]
     Active Substance: AMPHETAMINE ASPARTATE\AMPHETAMINE SULFATE\DEXTROAMPHETAMINE SACCHARATE\DEXTROAMPHETAMINE SULFATE
  6. ARIPIPRAZOLE [Concomitant]
     Active Substance: ARIPIPRAZOLE
     Dates: start: 20240819
  7. BACLOFEN [Concomitant]
     Active Substance: BACLOFEN
     Dates: start: 20250131
  8. FIORICET 50-325-40 MG [Concomitant]
     Dates: start: 20250123
  9. CITALOPRAM [Concomitant]
     Active Substance: CITALOPRAM
  10. CLONAZEPAM [Concomitant]
     Active Substance: CLONAZEPAM
  11. DICLOFENAC [Concomitant]
     Active Substance: DICLOFENAC
     Dates: start: 20240830
  12. FENOFIBRATE [Concomitant]
     Active Substance: FENOFIBRATE
  13. FLUCONAZOLE [Concomitant]
     Active Substance: FLUCONAZOLE
     Dates: start: 20241112
  14. FUROSEMIDE [Concomitant]
     Active Substance: FUROSEMIDE
     Dates: start: 20230914
  15. GABAPENTIN [Concomitant]
     Active Substance: GABAPENTIN
     Dates: start: 20241028
  16. HYDROXYZINE PAMOATE [Concomitant]
     Active Substance: HYDROXYZINE PAMOATE
     Dates: start: 20240802
  17. MECLIZINE HYDROCHLORIDE [Concomitant]
     Active Substance: MECLIZINE HYDROCHLORIDE
     Dates: start: 20240624
  18. OMEPRAZOLE [Concomitant]
     Active Substance: OMEPRAZOLE
     Dates: start: 20230914
  19. POTASSIUM CHLORIDE [Concomitant]
     Active Substance: POTASSIUM CHLORIDE
     Dates: start: 20230914
  20. ROSUVASTATIN [Concomitant]
     Active Substance: ROSUVASTATIN
  21. TRAMADOL [Concomitant]
     Active Substance: TRAMADOL
     Dates: start: 20250123

REACTIONS (1)
  - Abdominal discomfort [None]

NARRATIVE: CASE EVENT DATE: 20250709
